FAERS Safety Report 10642107 (Version 2)
Quarter: 2015Q1

REPORT INFORMATION
  Report Type: Report from Study
  Country: US (occurrence: US)
  Receive Date: 20141210
  Receipt Date: 20150109
  Transmission Date: 20150720
  Serious: Yes (Other)
  Sender: FDA-Public Use
  Company Number: US-009507513-1412USA003813

PATIENT

DRUGS (2)
  1. HEXADROL [Suspect]
     Active Substance: DEXAMETHASONE
     Indication: PLASMA CELL MYELOMA
     Dosage: 25 MG/200, 40 MG, CYCLICAL, DOSED IN PULSE FASHION AT 40 MG FOR CYCLES 1-2
     Route: 048
  2. HEXADROL [Suspect]
     Active Substance: DEXAMETHASONE
     Dosage: WEEKLY IN CYCLE 3+

REACTIONS (2)
  - Fluid overload [Unknown]
  - Hypertensive crisis [Unknown]
